FAERS Safety Report 4741661-7 (Version None)
Quarter: 2005Q3

REPORT INFORMATION
  Report Type: 
  Country: None (occurrence: None)
  Receive Date: 20050801
  Receipt Date: 20050625
  Transmission Date: 20060218
  Serious: No
  Sender: FDA-Public Use
  Company Number: 2005PV000150

PATIENT
  Age: 53 Year
  Sex: Female
  Weight: 105.2345 kg

DRUGS (15)
  1. BYETTA [Suspect]
     Indication: DIABETES MELLITUS NON-INSULIN-DEPENDENT
     Dosage: 5 UG;BID;SC
     Route: 058
     Dates: start: 20050624
  2. METFORMIN [Concomitant]
  3. ZELNORM [Concomitant]
  4. NEXIUM [Concomitant]
  5. LEVOXYL [Concomitant]
  6. EFFEXOR [Concomitant]
  7. TOPAMAX [Concomitant]
  8. CYMBALTA [Concomitant]
  9. TRICOR [Concomitant]
  10. LIPITOR [Concomitant]
  11. MOBIC [Concomitant]
  12. VITAMIN B-12 [Concomitant]
  13. ASPIRIN [Concomitant]
  14. MULTI-VITAMINS [Concomitant]
  15. IRON [Concomitant]

REACTIONS (4)
  - ABDOMINAL DISTENSION [None]
  - DYSPEPSIA [None]
  - ERUCTATION [None]
  - VOMITING [None]
